FAERS Safety Report 7756259-6 (Version None)
Quarter: 2011Q3

REPORT INFORMATION
  Report Type: 
  Country: None (occurrence: None)
  Receive Date: 20110916
  Receipt Date: 20110822
  Transmission Date: 20111222
  Serious: No
  Sender: FDA-Public Use
  Company Number: US-ABBOTT-11P-163-0848979-00

PATIENT
  Sex: Male
  Weight: 144.37 kg

DRUGS (7)
  1. ZANTAC [Concomitant]
     Indication: GASTROOESOPHAGEAL REFLUX DISEASE
  2. ONGLYZA [Concomitant]
     Indication: DIABETES MELLITUS
  3. ACTOPLUS MET [Concomitant]
     Indication: DIABETES MELLITUS
  4. VITAMIN D [Concomitant]
     Indication: VITAMIN SUPPLEMENTATION
  5. CRESTOR [Concomitant]
     Indication: BLOOD TRIGLYCERIDES INCREASED
  6. TRILIPIX [Suspect]
     Indication: BLOOD TRIGLYCERIDES INCREASED
     Dates: start: 20110523, end: 20110704
  7. LANTUS [Concomitant]
     Indication: DIABETES MELLITUS

REACTIONS (3)
  - ANGER [None]
  - CRYING [None]
  - MOOD SWINGS [None]
